FAERS Safety Report 10951064 (Version 1)
Quarter: 2015Q1

REPORT INFORMATION
  Report Type: Spontaneous
  Country: US (occurrence: US)
  Receive Date: 20150324
  Receipt Date: 20150324
  Transmission Date: 20150721
  Serious: Yes (Hospitalization)
  Sender: FDA-Public Use
  Company Number: US-UNITED THERAPEUTICS-UNT-2015-001082

PATIENT
  Age: 45 Year
  Sex: Female
  Weight: 89.8 kg

DRUGS (4)
  1. REMODULIN [Suspect]
     Active Substance: TREPROSTINIL
     Indication: PULMONARY ARTERIAL HYPERTENSION
     Dosage: 0.108 ?G/KG, CONTINUING
     Route: 041
     Dates: start: 20051213
  2. COUMADIN [Concomitant]
     Active Substance: WARFARIN SODIUM
     Indication: PRODUCT USED FOR UNKNOWN INDICATION
  3. REMODULIN [Suspect]
     Active Substance: TREPROSTINIL
     Dosage: 0.108 ?G/KG, CONTINUING
     Route: 041
     Dates: start: 20051213
  4. SILDENAFIL. [Concomitant]
     Active Substance: SILDENAFIL
     Indication: PRODUCT USED FOR UNKNOWN INDICATION

REACTIONS (4)
  - Oedema [Unknown]
  - Hypotension [Unknown]
  - Atrial fibrillation [Unknown]
  - Fluid retention [Unknown]

NARRATIVE: CASE EVENT DATE: 201501
